FAERS Safety Report 7258524-8 (Version None)
Quarter: 2011Q1

REPORT INFORMATION
  Report Type: 
  Country: None (occurrence: None)
  Receive Date: 20110129
  Receipt Date: 20100524
  Transmission Date: 20110831
  Serious: No
  Sender: FDA-Public Use
  Company Number: US-ABBOTT-10P-163-0647710-00

PATIENT
  Sex: Female
  Weight: 55.388 kg

DRUGS (6)
  1. LIALDA [Concomitant]
  2. PREDNISONE [Concomitant]
     Indication: CROHN'S DISEASE
  3. PENTASA [Concomitant]
     Indication: CROHN'S DISEASE
  4. ENDOCORT [Concomitant]
  5. HUMIRA [Suspect]
     Indication: CROHN'S DISEASE
     Route: 058
     Dates: start: 20070101
  6. DILAUDID [Suspect]
     Indication: PROCEDURAL PAIN
     Dates: start: 20100210, end: 20100210

REACTIONS (8)
  - DELUSIONAL DISORDER, UNSPECIFIED TYPE [None]
  - INJECTION SITE PAIN [None]
  - DYSPNOEA [None]
  - DRUG DOSE OMISSION [None]
  - BRONCHITIS [None]
  - CHEST DISCOMFORT [None]
  - PROCEDURAL PAIN [None]
  - WRONG TECHNIQUE IN DRUG USAGE PROCESS [None]
